FAERS Safety Report 4320337-4 (Version None)
Quarter: 2004Q1

REPORT INFORMATION
  Report Type: 
  Country: None (occurrence: None)
  Receive Date: 20040317
  Receipt Date: 20040303
  Transmission Date: 20041129
  Serious: Yes (Hospitalization)
  Sender: FDA-Public Use
  Company Number: 2004IC000037

PATIENT
  Age: 63 Year
  Sex: Male

DRUGS (7)
  1. FLUOROURACIL [Suspect]
     Indication: GASTRIC CANCER
     Dosage: 340 MG; INTRAVENOUS
     Route: 042
     Dates: start: 20021224, end: 20030205
  2. LAGNOS (LACTULOSE) [Concomitant]
  3. URSO [Concomitant]
  4. ALTAT [Concomitant]
  5. AMINOLEBAN EN [Concomitant]
  6. LUPRAC (TORASEMIDE) [Concomitant]
  7. MYSLEE [Concomitant]

REACTIONS (3)
  - ALANINE AMINOTRANSFERASE INCREASED [None]
  - ASPARTATE AMINOTRANSFERASE INCREASED [None]
  - HEPATIC FUNCTION ABNORMAL [None]
